FAERS Safety Report 5750938-8 (Version None)
Quarter: 2008Q2

REPORT INFORMATION
  Report Type: 
  Country: None (occurrence: None)
  Receive Date: 20080528
  Receipt Date: 20080523
  Transmission Date: 20081010
  Serious: Yes (Hospitalization)
  Sender: FDA-Public Use
  Company Number: AU-MERCK-0805AUS00183

PATIENT
  Age: 68 Year
  Sex: Male
  Weight: 82 kg

DRUGS (8)
  1. EDECRIN [Suspect]
     Route: 065
     Dates: end: 20061213
  2. EDECRIN [Suspect]
     Route: 065
     Dates: start: 20061217
  3. PANTOPRAZOLE [Suspect]
     Route: 065
     Dates: end: 20061215
  4. PERINDOPRIL [Suspect]
     Indication: ESSENTIAL HYPERTENSION
     Route: 048
     Dates: start: 20061015, end: 20061215
  5. SPIRONOLACTONE [Suspect]
     Route: 048
     Dates: end: 20061213
  6. ASPIRIN [Concomitant]
     Route: 048
  7. FERROUS SULFATE [Concomitant]
     Route: 048
  8. SIMVASTATIN [Concomitant]
     Route: 048

REACTIONS (1)
  - RENAL FAILURE CHRONIC [None]
